FAERS Safety Report 10728819 (Version 1)
Quarter: 2015Q1

REPORT INFORMATION
  Report Type: Spontaneous
  Country: US (occurrence: None)
  Receive Date: 20150120
  Receipt Date: 20150120
  Transmission Date: 20150721
  Serious: No
  Sender: FDA-Public Use
  Company Number: None

PATIENT
  Age: 30 Year
  Sex: Female
  Weight: 80.74 kg

DRUGS (1)
  1. VIIBRYD [Suspect]
     Active Substance: VILAZODONE HYDROCHLORIDE
     Indication: DEPRESSION
     Dosage: 40MG DAILY ONCE DAILY TAKEN BY MOUTH
     Route: 048
     Dates: start: 20141205, end: 20150117

REACTIONS (8)
  - Myalgia [None]
  - Pruritus [None]
  - Abnormal dreams [None]
  - Headache [None]
  - Irritability [None]
  - Feeling abnormal [None]
  - Paraesthesia [None]
  - Anxiety [None]

NARRATIVE: CASE EVENT DATE: 20150115
